FAERS Safety Report 18918641 (Version 2)
Quarter: 2021Q2

REPORT INFORMATION
  Report Type: Spontaneous
  Country: US (occurrence: US)
  Receive Date: 20210220
  Receipt Date: 20210415
  Transmission Date: 20210717
  Serious: No
  Sender: FDA-Public Use
  Company Number: US-ASTRAZENECA-2021A037914

PATIENT
  Sex: Male

DRUGS (1)
  1. SYMBICORT [Suspect]
     Active Substance: BUDESONIDE\FORMOTEROL FUMARATE DIHYDRATE
     Dosage: TWO PUFFS, UNKNOWN FREQUENCY UNKNOWN
     Route: 055

REACTIONS (4)
  - Wrong technique in device usage process [Unknown]
  - Weight decreased [Unknown]
  - Intentional device misuse [Unknown]
  - Device malfunction [Unknown]
